FAERS Safety Report 4689167-8 (Version None)
Quarter: 2005Q2

REPORT INFORMATION
  Report Type: 
  Country: None (occurrence: None)
  Receive Date: 20050613
  Receipt Date: 20050603
  Transmission Date: 20051028
  Serious: Yes (Hospitalization)
  Sender: FDA-Public Use
  Company Number: 2005UW08656

PATIENT
  Age: 38 Year
  Sex: Female
  Weight: 79.8 kg

DRUGS (6)
  1. SEROQUEL [Suspect]
     Route: 048
  2. RISPERDAL [Concomitant]
  3. BLOOD PRESSURE MEDICATION [Concomitant]
  4. INSULIN [Concomitant]
  5. STELAZINE [Concomitant]
  6. ZOLOFT [Concomitant]

REACTIONS (2)
  - ILL-DEFINED DISORDER [None]
  - WEIGHT INCREASED [None]
